FAERS Safety Report 13261205 (Version 1)
Quarter: 2017Q1

REPORT INFORMATION
  Report Type: Spontaneous
  Country: CN (occurrence: CN)
  Receive Date: 20170222
  Receipt Date: 20170222
  Transmission Date: 20170428
  Serious: Yes (Hospitalization)
  Sender: FDA-Public Use
  Company Number: CN-FRESENIUS KABI-FK201701512

PATIENT
  Age: 16 Year
  Sex: Male

DRUGS (3)
  1. DOXORUBICIN (MANUFACTURER UNKNOWN) [Suspect]
     Active Substance: DOXORUBICIN
     Indication: DESMOID TUMOUR
     Route: 065
     Dates: start: 20140524
  2. MELOXICAM. [Suspect]
     Active Substance: MELOXICAM
     Indication: DESMOID TUMOUR
     Dates: start: 20140524
  3. DACARBAZINE (MANUFACTURER UNKNOWN) [Suspect]
     Active Substance: DACARBAZINE
     Indication: DESMOID TUMOUR
     Route: 041
     Dates: start: 20140524

REACTIONS (1)
  - Intestinal perforation [Recovered/Resolved]
